FAERS Safety Report 9007824 (Version 1)
Quarter: 2013Q1

REPORT INFORMATION
  Report Type: Spontaneous
  Country: US (occurrence: US)
  Receive Date: 20130111
  Receipt Date: 20130111
  Transmission Date: 20140127
  Serious: Yes (Other)
  Sender: FDA-Public Use
  Company Number: US-009507513-0911USA00666

PATIENT
  Age: 28 Year
  Sex: Female
  Weight: 65.77 kg

DRUGS (5)
  1. SINGULAIR [Suspect]
     Indication: ASTHMA EXERCISE INDUCED
     Dosage: 10 MG, QD
     Route: 048
     Dates: start: 20051101, end: 20081101
  2. SINGULAIR [Suspect]
     Indication: ASTHMA
  3. SINGULAIR [Suspect]
     Indication: COUGH
  4. CLARITIN [Concomitant]
  5. ENPRESSE [Concomitant]

REACTIONS (1)
  - Menorrhagia [Recovering/Resolving]
